FAERS Safety Report 17409244 (Version 2)
Quarter: 2020Q1

REPORT INFORMATION
  Report Type: Spontaneous
  Country: FR (occurrence: FR)
  Receive Date: 20200212
  Receipt Date: 20200218
  Transmission Date: 20200409
  Serious: Yes (Other)
  Sender: FDA-Public Use
  Company Number: NVSC2020FR031242

PATIENT
  Age: 6 Year
  Sex: Female

DRUGS (7)
  1. OSPOLOT [Suspect]
     Active Substance: SULTHIAME
     Indication: CSWS SYNDROME
     Dosage: 50 MG, QD
     Route: 048
     Dates: start: 20190809, end: 20190814
  2. URBANYL [Concomitant]
     Active Substance: CLOBAZAM
     Indication: PRODUCT USED FOR UNKNOWN INDICATION
     Dosage: 10 MG, QD
     Route: 065
     Dates: start: 201902
  3. OXCARBAZEPINE. [Suspect]
     Active Substance: OXCARBAZEPINE
     Indication: CSWS SYNDROME
     Dosage: 600 MG, QD
     Route: 065
     Dates: start: 201807, end: 201811
  4. SODIUM VALPROATE [Suspect]
     Active Substance: VALPROATE SODIUM
     Indication: CSWS SYNDROME
     Dosage: 500 MG, QD
     Route: 065
     Dates: start: 201803, end: 201808
  5. KEPPRA [Concomitant]
     Active Substance: LEVETIRACETAM
     Dosage: 600 MG, QD
     Route: 065
     Dates: start: 201808
  6. OSPOLOT [Suspect]
     Active Substance: SULTHIAME
     Dosage: 100 MG, QD
     Route: 048
     Dates: start: 20190815, end: 20190905
  7. KEPPRA [Concomitant]
     Active Substance: LEVETIRACETAM
     Indication: PRODUCT USED FOR UNKNOWN INDICATION
     Dosage: 1000 MG, QD
     Route: 065

REACTIONS (7)
  - Asthenia [Recovered/Resolved]
  - Drug ineffective [Unknown]
  - Aggression [Recovered/Resolved]
  - Off label use [Recovered/Resolved]
  - Adverse drug reaction [Unknown]
  - Decreased appetite [Recovered/Resolved]
  - Fatigue [Unknown]

NARRATIVE: CASE EVENT DATE: 2018
